FAERS Safety Report 7484876-X (Version None)
Quarter: 2011Q2

REPORT INFORMATION
  Report Type: 
  Country: None (occurrence: None)
  Receive Date: 20110517
  Receipt Date: 20110510
  Transmission Date: 20111010
  Serious: Yes (Hospitalization)
  Sender: FDA-Public Use
  Company Number: A0850331A

PATIENT
  Age: 60 Year
  Sex: Male

DRUGS (9)
  1. AVANDIA [Suspect]
     Dosage: 8MG PER DAY
     Route: 048
     Dates: start: 20010323, end: 20041101
  2. VIOXX [Concomitant]
  3. LOTREL [Concomitant]
  4. CIALIS [Concomitant]
  5. DIOVAN [Concomitant]
  6. GLYBURIDE [Concomitant]
  7. PROSCAR [Concomitant]
  8. HYDROCHLOROTHIAZIDE [Concomitant]
  9. PAXIL [Concomitant]

REACTIONS (1)
  - MYOCARDIAL INFARCTION [None]
